FAERS Safety Report 4789093-X (Version None)
Quarter: 2005Q4

REPORT INFORMATION
  Report Type: 
  Country: None (occurrence: None)
  Receive Date: 20051005
  Receipt Date: 20050124
  Transmission Date: 20060501
  Serious: Yes (Death, Hospitalization)
  Sender: FDA-Public Use
  Company Number: US-MERCK-0501USA03637

PATIENT
  Age: 74 Year
  Sex: Male
  Weight: 86 kg

DRUGS (13)
  1. VIOXX [Suspect]
     Indication: ARTHRITIS
     Route: 048
     Dates: start: 20010101, end: 20021230
  2. BETOPTIC [Concomitant]
     Indication: GLAUCOMA
     Route: 065
  3. DARVOCET-N 100 [Concomitant]
     Route: 048
  4. ATENOLOL [Concomitant]
     Indication: HYPERTENSION
     Route: 048
     Dates: start: 20020721
  5. SAW PALMETTO STANDARDIZED EXTRACT [Concomitant]
     Route: 065
     Dates: start: 19990101
  6. AUGMENTIN [Concomitant]
     Route: 065
  7. METOCLOPRAMIDE [Concomitant]
     Route: 065
  8. RANITIDINE [Concomitant]
     Route: 065
  9. CLARITIN [Concomitant]
     Route: 065
  10. INDOMETHACIN [Concomitant]
     Route: 065
  11. RELAFEN [Concomitant]
     Route: 065
  12. ERY-TAB [Concomitant]
     Route: 065
  13. VALTREX [Concomitant]
     Route: 065

REACTIONS (7)
  - CARDIO-RESPIRATORY ARREST [None]
  - CYANOSIS [None]
  - FEELING ABNORMAL [None]
  - LOSS OF CONSCIOUSNESS [None]
  - MYOCARDIAL INFARCTION [None]
  - NECK PAIN [None]
  - PAIN IN EXTREMITY [None]
